FAERS Safety Report 6210945-8 (Version None)
Quarter: 2009Q2

REPORT INFORMATION
  Report Type: 
  Country: None (occurrence: None)
  Receive Date: 20090602
  Receipt Date: 20071112
  Transmission Date: 20091009
  Serious: Yes (Other)
  Sender: FDA-Public Use
  Company Number: US-ASTRAZENECA-2006UW27856

PATIENT
  Age: 16269 Day
  Sex: Female

DRUGS (13)
  1. SEROQUEL [Suspect]
     Indication: DEPRESSION
     Route: 048
     Dates: start: 20010101, end: 20040101
  2. SEROQUEL [Suspect]
     Route: 048
     Dates: start: 20010516
  3. DEPAKOTE [Concomitant]
     Dates: start: 20010926
  4. METFORMIN [Concomitant]
     Route: 048
     Dates: start: 20010926
  5. SYNTHROID [Concomitant]
     Dates: start: 19990109
  6. NEURONTIN [Concomitant]
     Dates: start: 20010926
  7. PROTONIX [Concomitant]
     Dates: start: 20010926
  8. VIOXX [Concomitant]
     Dates: start: 20010926
  9. HYDROCODONE BITARTRATE [Concomitant]
     Indication: PAIN
     Dosage: 10/500 EVERY SIX HOURS
     Dates: start: 20010926
  10. PAXIL [Concomitant]
     Dates: start: 20010926
  11. DIAZEPAM [Concomitant]
     Dates: start: 20010926
  12. POTASSIUM CHLORIDE [Concomitant]
     Dates: start: 20010926
  13. LASIX [Concomitant]
     Dates: start: 20010926

REACTIONS (2)
  - DIABETES MELLITUS [None]
  - DIABETIC NEUROPATHY [None]
